FAERS Safety Report 4895909-9 (Version None)
Quarter: 2006Q1

REPORT INFORMATION
  Report Type: 
  Country: None (occurrence: None)
  Receive Date: 20060125
  Receipt Date: 20051220
  Transmission Date: 20060701
  Serious: Yes (Hospitalization)
  Sender: FDA-Public Use
  Company Number: 221312

PATIENT
  Age: 49 Year
  Sex: Female
  Weight: 97 kg

DRUGS (6)
  1. AVASTIN [Suspect]
     Indication: COLORECTAL CANCER
     Dosage: 724 MG, Q3W, INTRAVENOUS
     Route: 042
     Dates: start: 20051123
  2. CAPECITABINE (CAPECITABINE) [Suspect]
     Indication: COLORECTAL CANCER
     Dosage: 4000 MG, QD, ORAL
     Route: 048
     Dates: start: 20051214, end: 20051215
  3. OXALIPLATIN (OXALIPLATIN) [Suspect]
     Indication: COLORECTAL CANCER
     Dosage: 260 MG, QD, INTRAVENOUS
     Route: 042
     Dates: start: 20051214, end: 20051214
  4. RANITIDINE [Concomitant]
  5. IBUPROFEN [Concomitant]
  6. LOPERAMIDE [Concomitant]

REACTIONS (2)
  - ANAPHYLACTIC REACTION [None]
  - DIARRHOEA [None]
